FAERS Safety Report 5782561-3 (Version None)
Quarter: 2008Q2

REPORT INFORMATION
  Report Type: 
  Country: None (occurrence: None)
  Receive Date: 20080623
  Receipt Date: 20080611
  Transmission Date: 20081010
  Serious: Yes (Other)
  Sender: FDA-Public Use
  Company Number: US-PFIZER INC-2008049756

PATIENT
  Sex: Female
  Weight: 54.4 kg

DRUGS (7)
  1. CHANTIX [Suspect]
     Indication: SMOKING CESSATION THERAPY
     Dosage: FREQ:DAILY
  2. OXYCONTIN [Concomitant]
  3. METHADONE HCL [Concomitant]
  4. VALIUM [Concomitant]
  5. CARISOPRODOL [Concomitant]
  6. TRAZODONE HCL [Concomitant]
  7. ESTRADERM [Concomitant]

REACTIONS (6)
  - DIZZINESS [None]
  - FEELING OF BODY TEMPERATURE CHANGE [None]
  - GAIT DISTURBANCE [None]
  - HYPERHIDROSIS [None]
  - MOBILITY DECREASED [None]
  - MUSCLE SPASMS [None]
